FAERS Safety Report 7998155-5 (Version None)
Quarter: 2011Q4

REPORT INFORMATION
  Report Type: 
  Country: None (occurrence: None)
  Receive Date: 20111221
  Receipt Date: 20110311
  Transmission Date: 20120403
  Serious: No
  Sender: FDA-Public Use
  Company Number: US-GLAXOSMITHKLINE-A0917831A

PATIENT
  Age: 63 Year
  Sex: Female

DRUGS (27)
  1. BENICAR [Concomitant]
  2. NORTRIPTYLINE HCL [Concomitant]
  3. ANTIVERT [Concomitant]
  4. URSODIOL [Concomitant]
  5. MAGNESIUM [Concomitant]
  6. SUPER B COMPLEX [Concomitant]
  7. LIDOCAINE [Concomitant]
  8. GABAPENTIN [Concomitant]
  9. FELDENE [Concomitant]
  10. ASPIRIN [Concomitant]
  11. FLONASE [Concomitant]
  12. LOVAZA [Suspect]
     Indication: BLOOD TRIGLYCERIDES INCREASED
     Dosage: 2G TWICE PER DAY
     Route: 048
  13. VITAMIN B6 [Concomitant]
  14. LORATADINE [Concomitant]
  15. HYDROCHLOROTHIAZIDE [Concomitant]
  16. GABAPENTIN [Concomitant]
  17. CENTRUM [Concomitant]
  18. CALCIUM WITH VITAMIN D [Concomitant]
  19. SELENIUM [Concomitant]
  20. ACETAMINOPHEN [Concomitant]
  21. ZOLOFT [Concomitant]
  22. TYLENOL W/ CODEINE [Concomitant]
  23. FIORICET [Concomitant]
  24. METHOCARBAMOL [Concomitant]
  25. TRAZODONE HCL [Concomitant]
  26. VITAMIN E [Concomitant]
  27. UNSPECIFIED MEDICATION [Concomitant]

REACTIONS (1)
  - DYSGEUSIA [None]
